FAERS Safety Report 4579590-4 (Version None)
Quarter: 2005Q1

REPORT INFORMATION
  Report Type: 
  Country: None (occurrence: None)
  Receive Date: 20050210
  Receipt Date: 20050126
  Transmission Date: 20050727
  Serious: Yes (Death, Hospitalization)
  Sender: FDA-Public Use
  Company Number: 2004AL000806

PATIENT
  Age: 33 Year
  Sex: Female

DRUGS (4)
  1. ALPRAZOLAM [Suspect]
     Dosage: PO
     Route: 048
  2. RISPERIDONE [Suspect]
     Dosage: PO
     Route: 048
  3. TRANYLCYPROMINE [Suspect]
     Dosage: PO
     Route: 048
  4. CLONAZEPAM [Suspect]
     Dosage: PO
     Route: 048

REACTIONS (22)
  - ANION GAP INCREASED [None]
  - BLOOD BICARBONATE DECREASED [None]
  - BLOOD GLUCOSE INCREASED [None]
  - BLOOD PH DECREASED [None]
  - BLOOD POTASSIUM INCREASED [None]
  - BLOOD PRESSURE DIASTOLIC DECREASED [None]
  - COMA [None]
  - COMPLETED SUICIDE [None]
  - COMPUTERISED TOMOGRAM ABNORMAL [None]
  - DECEREBRATION [None]
  - GRAND MAL CONVULSION [None]
  - HYPERTHERMIA [None]
  - HYPOTENSION [None]
  - INTENTIONAL MISUSE [None]
  - MUSCLE RIGIDITY [None]
  - NYSTAGMUS [None]
  - PO2 INCREASED [None]
  - PUPILLARY REFLEX IMPAIRED [None]
  - RESPIRATORY RATE DECREASED [None]
  - SINUS TACHYCARDIA [None]
  - STATUS EPILEPTICUS [None]
  - THERAPY NON-RESPONDER [None]
